FAERS Safety Report 9156566 (Version 1)
Quarter: 2013Q1

REPORT INFORMATION
  Report Type: Spontaneous
  Country: US (occurrence: None)
  Receive Date: 20130308
  Receipt Date: 20130308
  Transmission Date: 20140127
  Serious: No
  Sender: FDA-Public Use
  Company Number: None

PATIENT
  Age: 40 Year
  Sex: Male
  Weight: 90.72 kg

DRUGS (1)
  1. DIVALPROEX [Suspect]
     Dosage: 750MG DAILY PO
     Route: 048

REACTIONS (1)
  - Ammonia increased [None]
